FAERS Safety Report 11791122 (Version 1)
Quarter: 2015Q4

REPORT INFORMATION
  Report Type: Spontaneous
  Country: US (occurrence: None)
  Receive Date: 20151130
  Receipt Date: 20151130
  Transmission Date: 20160305
  Serious: Yes (Hospitalization)
  Sender: FDA-Public Use
  Company Number: None

PATIENT
  Age: 75 Year
  Sex: Male

DRUGS (1)
  1. XALKORI [Suspect]
     Active Substance: CRIZOTINIB
     Indication: NEOPLASM
     Route: 048
     Dates: start: 20151107, end: 20151119

REACTIONS (5)
  - Abasia [None]
  - Dizziness [None]
  - Asthenia [None]
  - Fluid retention [None]
  - Abdominal pain upper [None]

NARRATIVE: CASE EVENT DATE: 20151117
